FAERS Safety Report 11341604 (Version 9)
Quarter: 2020Q1

REPORT INFORMATION
  Report Type: Report from Study
  Country: AU (occurrence: AU)
  Receive Date: 20150805
  Receipt Date: 20200119
  Transmission Date: 20200409
  Serious: Yes (Hospitalization, Other)
  Sender: FDA-Public Use
  Company Number: PHHY2015AU092583

PATIENT
  Age: 41 Year
  Sex: Male

DRUGS (18)
  1. METOCLOPRAMIDE. [Concomitant]
     Active Substance: METOCLOPRAMIDE
     Indication: ANXIETY
     Dosage: UNK
     Route: 065
     Dates: start: 20160503, end: 20160503
  2. DULOXETINE. [Concomitant]
     Active Substance: DULOXETINE
     Indication: DEPRESSION
     Dosage: UNK
     Route: 065
  3. TEMAZEPAM. [Concomitant]
     Active Substance: TEMAZEPAM
     Indication: ANXIETY
     Dosage: 15 MG, UNK
     Route: 048
  4. FLUOXETINE [Concomitant]
     Active Substance: FLUOXETINE HYDROCHLORIDE
     Indication: ANXIETY
  5. TEMAZEPAM. [Concomitant]
     Active Substance: TEMAZEPAM
     Indication: INSOMNIA
     Dosage: 10 MG, UNK
     Route: 065
     Dates: start: 20150622, end: 20150623
  6. DIAZEPAM. [Concomitant]
     Active Substance: DIAZEPAM
     Indication: ANXIETY
     Dosage: 5 MG, BID
     Route: 065
     Dates: start: 20150622, end: 20150624
  7. CYMBALTA [Concomitant]
     Active Substance: DULOXETINE HYDROCHLORIDE
     Indication: DEPRESSION
     Dosage: 60 MG, UNK
     Route: 065
     Dates: start: 20140414
  8. DALTEPARIN [Concomitant]
     Active Substance: DALTEPARIN
     Dosage: UNK
     Route: 065
     Dates: start: 20160521, end: 20160522
  9. METOCLOPRAMIDE. [Concomitant]
     Active Substance: METOCLOPRAMIDE
     Indication: NAUSEA
     Route: 065
     Dates: start: 20150622, end: 20150622
  10. GILENYA [Suspect]
     Active Substance: FINGOLIMOD HYDROCHLORIDE
     Indication: MULTIPLE SCLEROSIS
     Dosage: 0.5 MG, QD
     Route: 048
     Dates: start: 20150619
  11. TEMAZEPAM. [Concomitant]
     Active Substance: TEMAZEPAM
     Dosage: UNK
     Route: 065
     Dates: start: 20160503, end: 20160503
  12. ONDANSETRON [Concomitant]
     Active Substance: ONDANSETRON
     Indication: PROPHYLAXIS
     Dosage: UNK
     Route: 065
     Dates: start: 20160509, end: 20160509
  13. INDOMETHACIN. [Concomitant]
     Active Substance: INDOMETHACIN
     Indication: PAIN
     Dosage: UNK
     Route: 065
     Dates: start: 20150815, end: 20150815
  14. DIAZEPAM. [Concomitant]
     Active Substance: DIAZEPAM
     Dosage: 20 MG, UNK
     Route: 048
     Dates: start: 20160521, end: 20160522
  15. NEUROFEN [Concomitant]
     Active Substance: IBUPROFEN
     Indication: PRODUCT USED FOR UNKNOWN INDICATION
     Dosage: 800 MG, UNK
     Route: 048
  16. FLUOXETINE [Concomitant]
     Active Substance: FLUOXETINE HYDROCHLORIDE
     Indication: DEPRESSION
     Dosage: UNK
     Route: 065
     Dates: start: 20151127
  17. TARGIN [Concomitant]
     Active Substance: NALOXONE HYDROCHLORIDE\OXYCODONE HYDROCHLORIDE
     Indication: PRODUCT USED FOR UNKNOWN INDICATION
     Route: 065
  18. DALTEPARIN [Concomitant]
     Active Substance: DALTEPARIN
     Indication: THROMBOSIS PROPHYLAXIS
     Dosage: UNK
     Route: 065
     Dates: start: 20150502, end: 20150503

REACTIONS (37)
  - Multiple sclerosis relapse [Recovered/Resolved]
  - Liver function test abnormal [Unknown]
  - Alanine aminotransferase increased [Unknown]
  - Allodynia [Not Recovered/Not Resolved]
  - Vertigo [Not Recovered/Not Resolved]
  - Anxiety [Recovered/Resolved]
  - Migraine [Recovered/Resolved]
  - Non-cardiac chest pain [Recovered/Resolved]
  - Central pain syndrome [Recovered/Resolved]
  - Pain [Recovered/Resolved]
  - Tremor [Unknown]
  - Psychogenic seizure [Recovered/Resolved]
  - Seizure [Recovered/Resolved]
  - Depression [Recovered/Resolved]
  - Neuralgia [Recovered/Resolved]
  - Dizziness [Recovered/Resolved]
  - Non-cardiac chest pain [Recovered/Resolved]
  - Muscle twitching [Recovering/Resolving]
  - Unresponsive to stimuli [Unknown]
  - Confusional state [Recovering/Resolving]
  - Dyskinesia [Recovering/Resolving]
  - Psychogenic seizure [Recovered/Resolved]
  - Neuralgia [Recovered/Resolved]
  - Headache [Recovered/Resolved]
  - Migraine [Recovered/Resolved]
  - Halo vision [Unknown]
  - Dizziness [Recovered/Resolved]
  - Paraesthesia [Not Recovered/Not Resolved]
  - Clonic convulsion [Recovering/Resolving]
  - Urinary incontinence [Unknown]
  - Haematocrit increased [Unknown]
  - Gamma-glutamyltransferase increased [Unknown]
  - Adjustment disorder [Not Recovered/Not Resolved]
  - Headache [Recovered/Resolved]
  - Altered state of consciousness [Recovering/Resolving]
  - Hypoaesthesia [Not Recovered/Not Resolved]
  - Arthralgia [Not Recovered/Not Resolved]

NARRATIVE: CASE EVENT DATE: 20150622
